FAERS Safety Report 11221661 (Version 1)
Quarter: 2015Q2

REPORT INFORMATION
  Report Type: Spontaneous
  Country: US (occurrence: None)
  Receive Date: 20150625
  Receipt Date: 20150625
  Transmission Date: 20150821
  Serious: Yes (Life-Threatening)
  Sender: FDA-Public Use
  Company Number: None

PATIENT
  Age: 77 Year
  Sex: Male
  Weight: 89.81 kg

DRUGS (6)
  1. ERGOCALCIFEROL. [Suspect]
     Active Substance: ERGOCALCIFEROL
     Indication: PHOTOSENSITIVITY REACTION
     Route: 048
     Dates: start: 20150110
  2. MOISTURIZED HEATING PAD [Concomitant]
  3. NITRO [Concomitant]
     Active Substance: NITROGLYCERIN
  4. VITAMIN B12 [Concomitant]
     Active Substance: CYANOCOBALAMIN
  5. BABY ASPIRIN [Concomitant]
     Active Substance: ASPIRIN
  6. CPAP [Concomitant]
     Active Substance: DEVICE

REACTIONS (7)
  - Dysstasia [None]
  - Confusional state [None]
  - Depression [None]
  - Fear [None]
  - Activities of daily living impaired [None]
  - Diarrhoea [None]
  - Suicidal ideation [None]

NARRATIVE: CASE EVENT DATE: 20150615
